FAERS Safety Report 4362636-6 (Version None)
Quarter: 2004Q2

REPORT INFORMATION
  Report Type: 
  Country: None (occurrence: None)
  Receive Date: 20040524
  Receipt Date: 20040517
  Transmission Date: 20050107
  Serious: Yes (Life-Threatening, Hospitalization)
  Sender: FDA-Public Use
  Company Number: PHBS2004JP06595

PATIENT
  Age: 71 Year
  Sex: Male

DRUGS (3)
  1. TEGRETOL [Suspect]
     Indication: HYPOAESTHESIA
     Dosage: 400 MG/DAY
     Route: 048
     Dates: start: 20040126, end: 20040130
  2. RIVOTRIL [Concomitant]
     Dosage: 1.5 MG/DAY
     Route: 048
     Dates: start: 20040115, end: 20040130
  3. DANTRIUM [Concomitant]
     Dosage: 50 MG/DAY
     Route: 048
     Dates: start: 20040113, end: 20040130

REACTIONS (5)
  - BLOOD LACTATE DEHYDROGENASE INCREASED [None]
  - INTERSTITIAL LUNG DISEASE [None]
  - LUNG INFILTRATION [None]
  - PYREXIA [None]
  - RESPIRATORY DEPRESSION [None]
